FAERS Safety Report 16756331 (Version 2)
Quarter: 2020Q4

REPORT INFORMATION
  Report Type: Report from Study
  Country: CZ (occurrence: CZ)
  Receive Date: 20190829
  Receipt Date: 20201221
  Transmission Date: 20210113
  Serious: Yes (Hospitalization)
  Sender: FDA-Public Use
  Company Number: CZ-UCBSA-2019035688

PATIENT
  Age: 45 Year
  Sex: Female
  Weight: 88 kg

DRUGS (4)
  1. CERTOLIZUMAB PEGOL [Suspect]
     Active Substance: CERTOLIZUMAB PEGOL
     Indication: AXIAL SPONDYLOARTHRITIS
     Dosage: 200 MILLIGRAM, WEEKLY (QW)
     Route: 058
     Dates: start: 20161108
  2. PLACEBO [Suspect]
     Active Substance: UNSPECIFIED INGREDIENT
     Indication: AXIAL SPONDYLOARTHRITIS
     Dosage: UNK, EV 2 WEEKS(QOW)
     Route: 058
     Dates: start: 20160719, end: 20161025
  3. CELEBREX [Concomitant]
     Active Substance: CELECOXIB
     Indication: SPONDYLOARTHROPATHY
     Dosage: 100 MILLIGRAM, ON DEMAND
     Route: 048
     Dates: start: 20160216
  4. ENHACIN [Concomitant]
     Indication: URINARY TRACT INFECTION
     Dosage: 875MG/125MG

REACTIONS (1)
  - Hypersensitivity vasculitis [Recovered/Resolved]

NARRATIVE: CASE EVENT DATE: 20190722
